FAERS Safety Report 8813975 (Version 2)
Quarter: 2012Q4

REPORT INFORMATION
  Report Type: 
  Country: MX (occurrence: MX)
  Receive Date: 20120928
  Receipt Date: 20121115
  Transmission Date: 20130627
  Serious: Yes (Other)
  Sender: FDA-Public Use
  Company Number: MX-ELI_LILLY_AND_COMPANY-MX201209007567

PATIENT
  Age: 56 Year
  Sex: Male

DRUGS (4)
  1. CIALIS [Suspect]
     Indication: ERECTILE DYSFUNCTION
     Dosage: 20 mg, prn
  2. CIALIS [Suspect]
     Dosage: 1 DF, unknown
  3. ENALAPRIL [Concomitant]
     Dosage: 1 DF, unknown
  4. ATORVASTATIN [Concomitant]
     Dosage: 1 DF, unknown

REACTIONS (1)
  - Pericardial effusion [Recovering/Resolving]
